FAERS Safety Report 10184139 (Version 2)
Quarter: 2015Q2

REPORT INFORMATION
  Report Type: Spontaneous
  Country: US (occurrence: US)
  Receive Date: 20140520
  Receipt Date: 20150608
  Transmission Date: 20150821
  Serious: No
  Sender: FDA-Public Use
  Company Number: US-TEVA-481551USA

PATIENT
  Age: 48 Year
  Sex: Female
  Weight: 77.18 kg

DRUGS (4)
  1. LORTAB [Concomitant]
     Active Substance: ACETAMINOPHEN\HYDROCODONE BITARTRATE
     Indication: PAIN
  2. OTFC [Suspect]
     Active Substance: FENTANYL CITRATE
     Indication: PAIN IN JAW
     Route: 048
     Dates: start: 2011
  3. OTFC [Suspect]
     Active Substance: FENTANYL CITRATE
     Indication: TEMPOROMANDIBULAR JOINT SYNDROME
  4. VITAMIN [Concomitant]
     Active Substance: VITAMINS
     Indication: SUPPLEMENTATION THERAPY

REACTIONS (5)
  - Malaise [Recovered/Resolved]
  - Respiratory disorder [Unknown]
  - Product use issue [Unknown]
  - Migraine [Not Recovered/Not Resolved]
  - Vomiting [Recovered/Resolved]

NARRATIVE: CASE EVENT DATE: 201312
